FAERS Safety Report 4348252-0 (Version None)
Quarter: 2004Q1

REPORT INFORMATION
  Report Type: 
  Country: None (occurrence: None)
  Receive Date: 20040329
  Receipt Date: 20031212
  Transmission Date: 20041129
  Serious: No
  Sender: FDA-Public Use
  Company Number: USA031153448

PATIENT
  Age: 7 Year
  Sex: Female
  Weight: 26 kg

DRUGS (3)
  1. STRATTERA [Suspect]
     Indication: ATTENTION DEFICIT/HYPERACTIVITY DISORDER
     Dosage: 25 MG/DAY
     Dates: start: 20031022
  2. VITAMINS NOS [Concomitant]
  3. DELSYM [Concomitant]

REACTIONS (6)
  - COUGH [None]
  - DIARRHOEA [None]
  - DYSPEPSIA [None]
  - MOOD SWINGS [None]
  - NASOPHARYNGITIS [None]
  - NAUSEA [None]
